FAERS Safety Report 6228240-X (Version None)
Quarter: 2009Q3

REPORT INFORMATION
  Report Type: 
  Country: None (occurrence: None)
  Receive Date: 20090612
  Receipt Date: 20090603
  Transmission Date: 20100115
  Serious: Yes (Other)
  Sender: FDA-Public Use
  Company Number: JP-ALLERGAN-0908060US

PATIENT
  Age: 12 Year
  Sex: Male

DRUGS (2)
  1. ALESION TABLET [Suspect]
     Indication: DRUG USE FOR UNKNOWN INDICATION
     Dosage: 90 TABLETS, SINGLE
     Route: 048
     Dates: start: 20090603, end: 20090603
  2. LENDORMIN [Suspect]
     Indication: DRUG USE FOR UNKNOWN INDICATION
     Dosage: 30 TABLETS, SINGLE
     Route: 048
     Dates: start: 20090603, end: 20090603

REACTIONS (3)
  - ALTERED STATE OF CONSCIOUSNESS [None]
  - DRUG ABUSE [None]
  - SUICIDE ATTEMPT [None]
